FAERS Safety Report 4705254-X (Version None)
Quarter: 2005Q3

REPORT INFORMATION
  Report Type: 
  Country: None (occurrence: None)
  Receive Date: 20050701
  Receipt Date: 20050620
  Transmission Date: 20060218
  Serious: Yes (Disabling)
  Sender: FDA-Public Use
  Company Number: DK-ROCHE-408187

PATIENT
  Age: 16 Year
  Sex: Male

DRUGS (1)
  1. ROACCUTAN [Suspect]
     Route: 048
     Dates: start: 20050115, end: 20050606

REACTIONS (5)
  - AGITATION [None]
  - INSOMNIA [None]
  - PAIN [None]
  - PRURITUS [None]
  - PSYCHOMOTOR HYPERACTIVITY [None]
